FAERS Safety Report 19421069 (Version 2)
Quarter: 2021Q3

REPORT INFORMATION
  Report Type: Report from Study
  Country: US (occurrence: US)
  Receive Date: 20210615
  Receipt Date: 20210719
  Transmission Date: 20211014
  Serious: Yes (Hospitalization)
  Sender: FDA-Public Use
  Company Number: US-BIOGEN-2021BI01019576

PATIENT
  Age: 26 Year
  Sex: Female

DRUGS (10)
  1. BUSPIRONE [Concomitant]
     Active Substance: BUSPIRONE HYDROCHLORIDE
     Indication: PRODUCT USED FOR UNKNOWN INDICATION
     Route: 048
  2. BACLOFEN. [Concomitant]
     Active Substance: BACLOFEN
     Indication: PRODUCT USED FOR UNKNOWN INDICATION
     Dosage: BACLOFEN 0.5 MG/ML, BACLOFEN PUMP SINCE 12 JUL 2017
     Route: 037
  3. MIRTAZAPINE. [Concomitant]
     Active Substance: MIRTAZAPINE
     Indication: PRODUCT USED FOR UNKNOWN INDICATION
     Dosage: MIRTAZAPINE (MIRTAZAPINE 45 MG ORAL TABLET)
     Route: 048
  4. CHOLECALCIFEROL [Concomitant]
     Active Substance: CHOLECALCIFEROL
     Indication: PRODUCT USED FOR UNKNOWN INDICATION
     Dosage: CHOLECALCIFERIL (VITAMIN D3 1000 INTL UNITS (25 MCG) ORAL TABLET)
     Route: 048
  5. GABAPENTIN. [Concomitant]
     Active Substance: GABAPENTIN
     Indication: PRODUCT USED FOR UNKNOWN INDICATION
     Dosage: GABAPENTIN (GABAPENTIN 400 MG ORAL CAPSULE)
     Route: 048
  6. LEVONORGESTREL. [Concomitant]
     Active Substance: LEVONORGESTREL
     Indication: PRODUCT USED FOR UNKNOWN INDICATION
     Dosage: LEVONORGESTREL (MIRENA 52 MG INTRAUTERINE DEVICE)
     Route: 015
  7. OMEPRAZOLE. [Concomitant]
     Active Substance: OMEPRAZOLE
     Indication: PRODUCT USED FOR UNKNOWN INDICATION
     Dosage: OMEPRAZOLE (OMEPRAZOLE 40 MG ORAL DELAYED RELEASE CAPSULE)
     Route: 048
  8. TYSABRI [Suspect]
     Active Substance: NATALIZUMAB
     Indication: MULTIPLE SCLEROSIS
     Route: 065
     Dates: start: 20160711
  9. ASPIRIN. [Concomitant]
     Active Substance: ASPIRIN
     Indication: PRODUCT USED FOR UNKNOWN INDICATION
     Dosage: 81 MG ORAL DELAYED RELEASE TABLET
     Route: 048
  10. SUMATRIPTAN. [Concomitant]
     Active Substance: SUMATRIPTAN
     Indication: MIGRAINE
     Dosage: SUMATRIPTAN (SUMATRIPTAN 100 MG ORAL TABLET) 1 TAB(S) BY MOUTH ONCE ADAY AS NEEDED FOR MIGRAINE H...
     Route: 048

REACTIONS (6)
  - Bladder catheterisation [Unknown]
  - Sepsis [Recovered/Resolved]
  - Anal incontinence [Unknown]
  - Decubitus ulcer [Not Recovered/Not Resolved]
  - Optic neuritis [Unknown]
  - Constipation [Unknown]

NARRATIVE: CASE EVENT DATE: 202106
